FAERS Safety Report 6019639-5 (Version None)
Quarter: 2008Q4

REPORT INFORMATION
  Report Type: 
  Country: None (occurrence: None)
  Receive Date: 20081224
  Receipt Date: 20081216
  Transmission Date: 20090506
  Serious: Yes (Other)
  Sender: FDA-Public Use
  Company Number: US-ELI_LILLY_AND_COMPANY-US200810006863

PATIENT
  Age: 33 Year
  Sex: Male

DRUGS (1)
  1. CYMBALTA [Suspect]
     Indication: ANXIETY
     Dosage: 120 MG, DAILY (1/D)
     Dates: start: 20070401

REACTIONS (4)
  - ADVERSE EVENT [None]
  - DIARRHOEA [None]
  - HEPATIC ENZYME INCREASED [None]
  - VOMITING [None]
